FAERS Safety Report 13822275 (Version 1)
Quarter: 2017Q3

REPORT INFORMATION
  Report Type: Spontaneous
  Country: US (occurrence: US)
  Receive Date: 20170801
  Receipt Date: 20170801
  Transmission Date: 20171127
  Serious: Yes (Disabling)
  Sender: FDA-Public Use
  Company Number: None

PATIENT
  Age: 56 Year
  Sex: Female
  Weight: 70.37 kg

DRUGS (4)
  1. TOPIRAMATE. [Suspect]
     Active Substance: TOPIRAMATE
     Indication: HEADACHE
     Dosage: ?          QUANTITY:ONE [CU^V \?VFW?VAN;?
     Route: 048
     Dates: start: 20160204, end: 20160206
  2. MAGNESIUM [Concomitant]
     Active Substance: MAGNESIUM
  3. PROBIOTICS [Concomitant]
     Active Substance: PROBIOTICS NOS
  4. COD LIVER OIL [Concomitant]
     Active Substance: COD LIVER OIL

REACTIONS (2)
  - Pain [None]
  - Seizure [None]

NARRATIVE: CASE EVENT DATE: 20170204
